FAERS Safety Report 7769602-9 (Version None)
Quarter: 2011Q3

REPORT INFORMATION
  Report Type: 
  Country: None (occurrence: None)
  Receive Date: 20110922
  Receipt Date: 20110513
  Transmission Date: 20111222
  Serious: No
  Sender: FDA-Public Use
  Company Number: US-ASTRAZENECA-2011SE14476

PATIENT
  Age: 57 Year
  Sex: Female

DRUGS (6)
  1. SEROQUEL XR [Suspect]
     Indication: DEPRESSION
     Route: 048
     Dates: start: 20100801
  2. PROPRANOLOL [Concomitant]
  3. PRIMIDONE [Concomitant]
  4. BONIVA [Concomitant]
  5. LEVOTHYROXINE SODIUM [Concomitant]
  6. SEROQUEL XR [Suspect]
     Indication: OBSESSIVE-COMPULSIVE DISORDER
     Route: 048
     Dates: start: 20100801

REACTIONS (1)
  - INFLUENZA [None]
